FAERS Safety Report 10622394 (Version 2)
Quarter: 2014Q4

REPORT INFORMATION
  Report Type: Report from Study
  Country: AR (occurrence: AR)
  Receive Date: 20141203
  Receipt Date: 20141203
  Transmission Date: 20150529
  Serious: Yes (Death, Hospitalization)
  Sender: FDA-Public Use
  Company Number: PHHY2014AR049969

PATIENT
  Age: 23 Year
  Sex: Male

DRUGS (2)
  1. TOBI PODHALER [Suspect]
     Active Substance: TOBRAMYCIN
     Indication: PSEUDOMONAS INFECTION
     Dosage: 4 AMPOULES DAILY
     Route: 055
     Dates: end: 201404
  2. TOBI PODHALER [Suspect]
     Active Substance: TOBRAMYCIN
     Indication: CYSTIC FIBROSIS PANCREATIC
     Dosage: UNK
     Route: 055
     Dates: start: 201405

REACTIONS (7)
  - Cough [Unknown]
  - Pneumonia [Fatal]
  - Weight decreased [Unknown]
  - Incorrect dose administered [Unknown]
  - Pulmonary function test decreased [Unknown]
  - Asthenia [Unknown]
  - Drug intolerance [Unknown]

NARRATIVE: CASE EVENT DATE: 201404
